FAERS Safety Report 15357150 (Version 1)
Quarter: 2018Q3

REPORT INFORMATION
  Report Type: Spontaneous
  Country: US (occurrence: US)
  Receive Date: 20180824
  Receipt Date: 20180824
  Transmission Date: 20181010
  Serious: Yes (Other)
  Sender: FDA-Public Use
  Company Number: None

PATIENT
  Age: 73 Year
  Sex: Male
  Weight: 102.06 kg

DRUGS (2)
  1. OLMESARTAN MEDOX/HCTZ [Concomitant]
  2. VALSARTAN HCTZ 160MG/12.5MG TABLET [Suspect]
     Active Substance: HYDROCHLOROTHIAZIDE\VALSARTAN
     Indication: HYPERTENSION
     Dosage: ?          QUANTITY:12.5 MG MILLIGRAM(S);?
     Route: 048
     Dates: start: 20180301, end: 20180718

REACTIONS (8)
  - Product quality issue [None]
  - Oropharyngeal pain [None]
  - Skin discolouration [None]
  - Wheezing [None]
  - Dyspnoea [None]
  - Product use issue [None]
  - Chest discomfort [None]
  - Dry eye [None]

NARRATIVE: CASE EVENT DATE: 20180301
